FAERS Safety Report 7624459-1 (Version None)
Quarter: 2011Q3

REPORT INFORMATION
  Report Type: 
  Country: None (occurrence: None)
  Receive Date: 20110712
  Receipt Date: 20110705
  Transmission Date: 20111222
  Serious: Yes (Hospitalization)
  Sender: FDA-Public Use
  Company Number: 2011SP031354

PATIENT
  Age: 31 Year
  Sex: Female

DRUGS (5)
  1. BUPROPION HCL [Concomitant]
  2. GABAPENTIN [Concomitant]
  3. ARIPIPRAZOLE [Concomitant]
  4. TRAZODONE HCL [Concomitant]
  5. SAPHRIS [Suspect]
     Indication: BIPOLAR I DISORDER
     Dosage: 10 MG, BID;

REACTIONS (8)
  - BIPOLAR I DISORDER [None]
  - SELF-INJURIOUS IDEATION [None]
  - CONDITION AGGRAVATED [None]
  - DEPRESSED MOOD [None]
  - TEARFULNESS [None]
  - FEELING OF DESPAIR [None]
  - SUICIDAL IDEATION [None]
  - FEELINGS OF WORTHLESSNESS [None]
